FAERS Safety Report 16509217 (Version 1)
Quarter: 2019Q3

REPORT INFORMATION
  Report Type: Spontaneous
  Country: US (occurrence: US)
  Receive Date: 20190701
  Receipt Date: 20190701
  Transmission Date: 20191004
  Serious: No
  Sender: FDA-Public Use
  Company Number: None

PATIENT

DRUGS (1)
  1. LEVOTHYROXINE. [Suspect]
     Active Substance: LEVOTHYROXINE

REACTIONS (5)
  - Blood thyroid stimulating hormone decreased [None]
  - Back pain [None]
  - Lethargy [None]
  - Chest pain [None]
  - Alopecia [None]
